FAERS Safety Report 7790781-1 (Version None)
Quarter: 2011Q3

REPORT INFORMATION
  Report Type: 
  Country: None (occurrence: None)
  Receive Date: 20110930
  Receipt Date: 20110922
  Transmission Date: 20111222
  Serious: Yes (Other)
  Sender: FDA-Public Use
  Company Number: CN-ASTRAZENECA-2011SE57168

PATIENT

DRUGS (3)
  1. LIDOCAINE [Suspect]
     Indication: POSTOPERATIVE ANALGESIA
     Route: 008
  2. ROPIVACAINE HYDROCHLORIDE [Suspect]
     Indication: POSTOPERATIVE ANALGESIA
     Route: 008
  3. DICLOFENAC [Suspect]
     Indication: POSTOPERATIVE ANALGESIA

REACTIONS (3)
  - TACHYPNOEA [None]
  - COLD SWEAT [None]
  - BLOOD PRESSURE DECREASED [None]
